FAERS Safety Report 5108883-7 (Version None)
Quarter: 2006Q3

REPORT INFORMATION
  Report Type: 
  Country: None (occurrence: None)
  Receive Date: 20060920
  Receipt Date: 20060907
  Transmission Date: 20061208
  Serious: Yes (Death, Hospitalization)
  Sender: FDA-Public Use
  Company Number: CH-AVENTIS-200614797EU

PATIENT
  Age: 12 Year
  Sex: Male

DRUGS (5)
  1. LASIX [Suspect]
     Indication: DRUG USE FOR UNKNOWN INDICATION
     Dates: start: 20060724, end: 20060804
  2. EXTENCILLINE [Suspect]
     Indication: RHEUMATIC FEVER
     Route: 030
     Dates: end: 20060804
  3. ALDACTONE [Concomitant]
     Indication: DRUG USE FOR UNKNOWN INDICATION
     Dates: end: 20060804
  4. CORDARONE [Concomitant]
     Indication: DRUG USE FOR UNKNOWN INDICATION
     Dates: start: 20060715, end: 20060804
  5. RENITEN                            /00574902/ [Concomitant]
     Indication: DRUG USE FOR UNKNOWN INDICATION
     Dates: start: 20060719, end: 20060804

REACTIONS (9)
  - ATRIAL FIBRILLATION [None]
  - BLOOD PH INCREASED [None]
  - CARDIAC FAILURE [None]
  - CARDIO-RESPIRATORY ARREST [None]
  - EYE ROLLING [None]
  - HYPOCALCAEMIA [None]
  - HYPOKALAEMIA [None]
  - LOSS OF CONSCIOUSNESS [None]
  - MITRAL VALVE INCOMPETENCE [None]
